FAERS Safety Report 8116436-1 (Version None)
Quarter: 2012Q1

REPORT INFORMATION
  Report Type: 
  Country: None (occurrence: None)
  Receive Date: 20120206
  Receipt Date: 20120126
  Transmission Date: 20120608
  Serious: Yes (Other)
  Sender: FDA-Public Use
  Company Number: US-ELI_LILLY_AND_COMPANY-US201201008456

PATIENT
  Sex: Male

DRUGS (1)
  1. HUMATROPE [Suspect]
     Dosage: UNK, UNKNOWN

REACTIONS (1)
  - MENINGIOMA [None]
